FAERS Safety Report 18197622 (Version 2)
Quarter: 2021Q3

REPORT INFORMATION
  Report Type: Spontaneous
  Country: JP (occurrence: JP)
  Receive Date: 20200826
  Receipt Date: 20210824
  Transmission Date: 20211014
  Serious: Yes (Other)
  Sender: FDA-Public Use
  Company Number: JP-PFIZER INC-2020329130

PATIENT
  Age: 69 Year
  Sex: Male
  Weight: 49.6 kg

DRUGS (5)
  1. LORBRENA [Suspect]
     Active Substance: LORLATINIB
     Dosage: 50 MG, 1X/DAY
     Route: 048
     Dates: start: 20200309, end: 20200321
  2. PITAVASTATIN CALCIUM [Suspect]
     Active Substance: PITAVASTATIN CALCIUM
     Dosage: 2 MG
     Dates: start: 20200130, end: 20200226
  3. LORBRENA [Suspect]
     Active Substance: LORLATINIB
     Dosage: 50 MG, 1X/DAY
     Route: 048
     Dates: start: 20200219, end: 20200226
  4. PITAVASTATIN CALCIUM [Suspect]
     Active Substance: PITAVASTATIN CALCIUM
     Dosage: UNK
     Dates: start: 20200127, end: 20200226
  5. LORBRENA [Suspect]
     Active Substance: LORLATINIB
     Indication: LUNG NEOPLASM MALIGNANT
     Dosage: 100 MG, DAILY
     Route: 048
     Dates: start: 20200122, end: 20200214

REACTIONS (22)
  - Dizziness [Not Recovered/Not Resolved]
  - Hypoaesthesia [Unknown]
  - Hyperlipidaemia [Unknown]
  - Eosinophil count increased [Unknown]
  - C-reactive protein increased [Unknown]
  - Nephrotic syndrome [Recovered/Resolved]
  - Hypertriglyceridaemia [Unknown]
  - Sedation [Unknown]
  - Blood pressure increased [Unknown]
  - Amylase increased [Recovered/Resolved]
  - Hepatic function abnormal [Unknown]
  - Blood alkaline phosphatase increased [Unknown]
  - Nightmare [Recovering/Resolving]
  - Neuropathy peripheral [Recovered/Resolved]
  - Arthropathy [Unknown]
  - Neoplasm progression [Unknown]
  - Alanine aminotransferase increased [Unknown]
  - Hypercholesterolaemia [Unknown]
  - Head discomfort [Unknown]
  - Oedema peripheral [Unknown]
  - Renal impairment [Recovering/Resolving]
  - Aspartate aminotransferase increased [Unknown]

NARRATIVE: CASE EVENT DATE: 20200124
